FAERS Safety Report 5025019-1 (Version None)
Quarter: 2006Q2

REPORT INFORMATION
  Report Type: 
  Country: None (occurrence: None)
  Receive Date: 20060607
  Receipt Date: 20060522
  Transmission Date: 20061013
  Serious: Yes (Hospitalization)
  Sender: FDA-Public Use
  Company Number: 225791

PATIENT
  Age: 56 Year
  Sex: Male

DRUGS (12)
  1. AVASTIN [Suspect]
     Indication: RECTAL CANCER
     Dosage: 5 MG/KG, Q2W, INTRAVENOUS
     Route: 042
     Dates: start: 20060110
  2. ERBITUX [Suspect]
     Indication: RECTAL CANCER
     Dosage: 400 MG/M2, INTRAVENOUS
     Route: 042
     Dates: start: 20060110
  3. OXALIPLATIN(OXALIPLATIN) [Suspect]
     Indication: RECTAL CANCER
     Dosage: 85 MG/M2, Q2W, INTRAVENOUS
     Route: 042
     Dates: start: 20060110
  4. FLUOROURACIL [Suspect]
     Indication: RECTAL CANCER
     Dosage: 400 MG/M2, Q2W, INTRAVENOUS
     Route: 042
     Dates: start: 20060110
  5. LEUCOVORIN CALCIUM [Suspect]
     Indication: RECTAL CANCER
     Dosage: 400 MG/M2, Q2W, INTRAVENOUS
     Route: 042
     Dates: start: 20060110
  6. AUGMENTIN '250' [Suspect]
  7. DIGOXIN [Suspect]
  8. CLINDAMYCIN [Suspect]
  9. CLOTRIMAZOLE [Suspect]
  10. ENALAPRIL MALEATE [Suspect]
  11. FUROSEMIDE [Suspect]
  12. VANCOMYCIN HYDROCHLORIDE [Suspect]

REACTIONS (13)
  - ANOREXIA [None]
  - ARTHRITIS [None]
  - BLOOD CREATININE INCREASED [None]
  - CATHETER RELATED INFECTION [None]
  - DIARRHOEA [None]
  - DYSPHAGIA [None]
  - FATIGUE [None]
  - GENITAL RASH [None]
  - HYPOMAGNESAEMIA [None]
  - HYPOPHOSPHATAEMIA [None]
  - MUCOSAL INFLAMMATION [None]
  - RASH [None]
  - STAPHYLOCOCCAL INFECTION [None]
